FAERS Safety Report 6151044-3 (Version None)
Quarter: 2009Q2

REPORT INFORMATION
  Report Type: 
  Country: None (occurrence: None)
  Receive Date: 20090410
  Receipt Date: 20090312
  Transmission Date: 20091009
  Serious: No
  Sender: FDA-Public Use
  Company Number: A0772803A

PATIENT
  Age: 51 Year
  Sex: Female

DRUGS (1)
  1. TYKERB [Suspect]
     Indication: BREAST CANCER
     Dosage: 5TAB PER DAY
     Route: 048
     Dates: start: 20081201

REACTIONS (6)
  - ACNE [None]
  - DYSPNOEA [None]
  - HEADACHE [None]
  - PALPITATIONS [None]
  - RASH GENERALISED [None]
  - URTICARIA [None]
